FAERS Safety Report 4297206-1 (Version None)
Quarter: 2004Q1

REPORT INFORMATION
  Report Type: 
  Country: None (occurrence: None)
  Receive Date: 20040213
  Receipt Date: 20040131
  Transmission Date: 20041129
  Serious: Yes (Hospitalization)
  Sender: FDA-Public Use
  Company Number: 2003127138

PATIENT
  Age: 21 Year
  Sex: Male

DRUGS (8)
  1. GEODON [Suspect]
     Indication: ANXIETY
     Dosage: 120 MG (DAILY)
     Dates: start: 20031201, end: 20031208
  2. GEODON [Suspect]
     Indication: DEPRESSION
     Dosage: 120 MG (DAILY)
     Dates: start: 20031201, end: 20031208
  3. VENLAFAXINE HCL [Concomitant]
  4. ESCITALOPRAM (ESCITALOPRAM) [Concomitant]
  5. TEMAZEPAM [Concomitant]
  6. METHYLPHENIDATE HYDROCHLORIDE (METHYLPHENIDATE HYDROCHLORIDE) [Concomitant]
  7. ALPRAZOLAM [Concomitant]
  8. NAPROXEN [Concomitant]

REACTIONS (7)
  - ANXIETY [None]
  - CIRCULATORY COLLAPSE [None]
  - DYSPNOEA [None]
  - DYSTONIA [None]
  - LARYNGOSPASM [None]
  - MUSCLE SPASMS [None]
  - PANIC DISORDER [None]
